FAERS Safety Report 12199441 (Version 1)
Quarter: 2016Q1

REPORT INFORMATION
  Report Type: Spontaneous
  Country: FR (occurrence: FR)
  Receive Date: 20160322
  Receipt Date: 20160322
  Transmission Date: 20160526
  Serious: Yes (Hospitalization)
  Sender: FDA-Public Use
  Company Number: FR-EMD SERONO-8073136

PATIENT
  Age: 42 Year
  Sex: Female

DRUGS (2)
  1. DUPHASTON [Suspect]
     Active Substance: DYDROGESTERONE
     Indication: INFERTILITY
     Dosage: IF PLASMA HCG IS NEGATIVE: TAKE 1 TAB IN MORNING AND 1 TAB IN THE EVENING FOR 10 DAYS.
     Route: 048
     Dates: start: 20150810, end: 20151130
  2. PERGOTIME [Suspect]
     Active Substance: CLOMIPHENE CITRATE
     Indication: INFERTILITY
     Dosage: ONE TABLET MORNING AND EVENING FROM DAY 2 TO DAY 6 OF CYCLE
     Route: 048
     Dates: start: 20151130, end: 20160120

REACTIONS (1)
  - Ischaemic stroke [Recovered/Resolved]

NARRATIVE: CASE EVENT DATE: 20160119
